FAERS Safety Report 16333684 (Version 2)
Quarter: 2019Q3

REPORT INFORMATION
  Report Type: Report from Study
  Country: None (occurrence: US)
  Receive Date: 20190520
  Receipt Date: 20190829
  Transmission Date: 20191004
  Serious: Yes (Hospitalization, Other)
  Sender: FDA-Public Use
  Company Number: US-ABBVIE-19K-163-2789036-00

PATIENT
  Age: 67 Year
  Sex: Male
  Weight: 97.61 kg

DRUGS (2)
  1. HUMIRA [Suspect]
     Active Substance: ADALIMUMAB
     Indication: PSORIATIC ARTHROPATHY
     Route: 058
     Dates: start: 20190323, end: 2019
  2. HUMIRA [Suspect]
     Active Substance: ADALIMUMAB
     Indication: PSORIASIS
     Route: 058
     Dates: start: 2019, end: 2019

REACTIONS (5)
  - Cellulitis [Recovered/Resolved]
  - Wound infection [Unknown]
  - Feeling abnormal [Not Recovered/Not Resolved]
  - Hernia [Recovered/Resolved]
  - Inflammation of wound [Not Recovered/Not Resolved]

NARRATIVE: CASE EVENT DATE: 20190331
